FAERS Safety Report 16720077 (Version 3)
Quarter: 2019Q4

REPORT INFORMATION
  Report Type: Spontaneous
  Country: US (occurrence: US)
  Receive Date: 20190820
  Receipt Date: 20191007
  Transmission Date: 20200122
  Serious: Yes (Death, Other)
  Sender: FDA-Public Use
  Company Number: US-PFIZER INC-2019353375

PATIENT
  Age: 90 Year
  Sex: Female
  Weight: 68.27 kg

DRUGS (11)
  1. NITROFURANTOIN. [Concomitant]
     Active Substance: NITROFURANTOIN
     Dosage: 50 MG, UNK, (M.W.F.)
  2. CALCIUM [Concomitant]
     Active Substance: CALCIUM
     Dosage: UNK, ONE PER DAY
  3. PANTOPRAZOLE [Concomitant]
     Active Substance: PANTOPRAZOLE
     Dosage: 40 MG, DAILY
  4. ASPIRIN [ACETYLSALICYLIC ACID] [Concomitant]
     Active Substance: ASPIRIN
     Dosage: UNK, ONE PER DAY, LOW DOSE
  5. GABAPENTIN. [Concomitant]
     Active Substance: GABAPENTIN
     Dosage: 100 MG, ONE PER DAY
  6. IBRANCE [Suspect]
     Active Substance: PALBOCICLIB
     Dosage: 125 MG, CYCLIC, (125 MG-ONCE A DAY 3 WEEKS-OFF ONE)
     Dates: start: 201707
  7. IBRANCE [Suspect]
     Active Substance: PALBOCICLIB
     Dosage: 75 MG, CYCLIC, (ONCE A DAY 3WEEKS OFF ONE)
     Dates: start: 201903, end: 201907
  8. LETROZOLE. [Concomitant]
     Active Substance: LETROZOLE
     Indication: BREAST CANCER
     Dosage: 2.5 MG, DAILY
     Dates: start: 201703
  9. IBRANCE [Suspect]
     Active Substance: PALBOCICLIB
     Indication: BREAST CANCER STAGE IV
     Dosage: 75 MG, CYCLIC (ONCE A DAY FOR 21 DAYS THEN 7 DAYS OFF)
     Route: 048
     Dates: start: 20171002, end: 201907
  10. AMLODIPINE [Concomitant]
     Active Substance: AMLODIPINE BESYLATE
     Dosage: 5 MG, DAILY
  11. VITAMIN D3 [Concomitant]
     Active Substance: CHOLECALCIFEROL
     Dosage: UNK, ONE PER DAY

REACTIONS (5)
  - Cytopenia [Unknown]
  - Anaemia [Recovered/Resolved]
  - Blood count abnormal [Recovered/Resolved]
  - Death [Fatal]
  - Urinary tract infection [Unknown]

NARRATIVE: CASE EVENT DATE: 201806
